FAERS Safety Report 12078456 (Version 2)
Quarter: 2016Q2

REPORT INFORMATION
  Report Type: Spontaneous
  Country: US (occurrence: US)
  Receive Date: 20160216
  Receipt Date: 20160427
  Transmission Date: 20160815
  Serious: No
  Sender: FDA-Public Use
  Company Number: US-LEO PHARMA-240094

PATIENT
  Sex: Female

DRUGS (1)
  1. PICATO [Suspect]
     Active Substance: INGENOL MEBUTATE
     Indication: PRODUCT USED FOR UNKNOWN INDICATION

REACTIONS (6)
  - Application site pain [Recovered/Resolved]
  - Application site erythema [Recovered/Resolved]
  - Drug administration error [Unknown]
  - Application site exfoliation [Recovered/Resolved]
  - Inappropriate schedule of drug administration [Unknown]
  - Application site vesicles [Recovered/Resolved]
